FAERS Safety Report 7812629-9 (Version None)
Quarter: 2011Q4

REPORT INFORMATION
  Report Type: 
  Country: None (occurrence: None)
  Receive Date: 20111013
  Receipt Date: 20110629
  Transmission Date: 20120403
  Serious: No
  Sender: FDA-Public Use
  Company Number: US-NOVEN-11US002731

PATIENT
  Sex: Male
  Weight: 92.971 kg

DRUGS (7)
  1. TEGADERM [Concomitant]
  2. AMLODIPINE [Concomitant]
     Indication: PRODUCT USED FOR UNKNOWN INDICATION
     Dosage: 5 MG, QD
     Route: 048
  3. SIMVASTATIN [Concomitant]
     Indication: PRODUCT USED FOR UNKNOWN INDICATION
     Dosage: 40 MG, QD
     Route: 048
  4. FENTANYL [Suspect]
     Indication: THERMAL BURN
     Dosage: 50 UG, Q48H
     Route: 062
     Dates: start: 20110101
  5. GABAPENTIN [Concomitant]
     Indication: THERMAL BURN
     Dosage: 600 MG, UNK
     Route: 048
     Dates: start: 20110205
  6. VICODIN [Concomitant]
     Indication: THERMAL BURN
     Dosage: 7.5 MG, UNK
     Route: 048
     Dates: start: 20110205
  7. ZYRTEC [Concomitant]
     Indication: PRODUCT USED FOR UNKNOWN INDICATION
     Dosage: 10 MG, QD
     Route: 048

REACTIONS (3)
  - PRODUCT QUALITY ISSUE [None]
  - APPLICATION SITE RASH [None]
  - DRUG ADMINISTRATION ERROR [None]
